FAERS Safety Report 17107317 (Version 1)
Quarter: 2019Q4

REPORT INFORMATION
  Report Type: Spontaneous
  Country: IL (occurrence: IL)
  Receive Date: 20191204
  Receipt Date: 20191204
  Transmission Date: 20200122
  Serious: Yes (Hospitalization, Other)
  Sender: FDA-Public Use
  Company Number: IL-BRISTOL-MYERS SQUIBB COMPANY-BMS-2019-112748

PATIENT
  Age: 58 Year
  Sex: Female

DRUGS (2)
  1. ALLORIL [Suspect]
     Active Substance: ALLOPURINOL
     Indication: PRODUCT USED FOR UNKNOWN INDICATION
     Route: 065
  2. SPRYCEL [Suspect]
     Active Substance: DASATINIB
     Indication: CHRONIC MYELOID LEUKAEMIA
     Dosage: 100 MILLIGRAM, DAILY
     Route: 065
     Dates: start: 20190916

REACTIONS (6)
  - Vasculitic rash [Recovered/Resolved]
  - Periorbital oedema [Unknown]
  - Vaginal ulceration [Unknown]
  - Rash [Unknown]
  - Constipation [Unknown]
  - Mouth ulceration [Unknown]
